FAERS Safety Report 25216748 (Version 2)
Quarter: 2025Q2

REPORT INFORMATION
  Report Type: Spontaneous
  Country: US (occurrence: US)
  Receive Date: 20250419
  Receipt Date: 20250516
  Transmission Date: 20250716
  Serious: No
  Sender: APOTEX
  Company Number: US-APOTEX-2025AP004295

PATIENT
  Age: 84 Year
  Sex: Female

DRUGS (1)
  1. IPRATROPIUM BROMIDE [Suspect]
     Active Substance: IPRATROPIUM BROMIDE
     Indication: Product used for unknown indication
     Dosage: UNK, BID (42 MCG PER SPRAY)
     Route: 045

REACTIONS (4)
  - Product delivery mechanism issue [Unknown]
  - Device difficult to use [Unknown]
  - Device defective [Unknown]
  - Incorrect dose administered [Unknown]

NARRATIVE: CASE EVENT DATE: 20250330
